FAERS Safety Report 8515219-8 (Version None)
Quarter: 2012Q3

REPORT INFORMATION
  Report Type: 
  Country: None (occurrence: None)
  Receive Date: 20120717
  Receipt Date: 20120709
  Transmission Date: 20120928
  Serious: Yes (Other)
  Sender: FDA-Public Use
  Company Number: DE-BRISTOL-MYERS SQUIBB COMPANY-16579732

PATIENT
  Age: 24 Year
  Sex: Female
  Weight: 120 kg

DRUGS (9)
  1. ABILIFY [Suspect]
     Indication: BORDERLINE PERSONALITY DISORDER
     Dosage: STARTED ABOUT TWO MONTHS AGO,15MG
     Route: 048
     Dates: start: 20111221, end: 20120510
  2. CITALOPRAM HYDROBROMIDE [Concomitant]
     Indication: DEPRESSION
     Route: 048
     Dates: start: 20100429
  3. DIPERODON [Concomitant]
     Dosage: 1DF=4 X 80MG
  4. PROTHIPENDYL [Concomitant]
     Dates: start: 20060101
  5. ASPIRIN [Concomitant]
     Dosage: DOMINAL-FORTE
     Dates: start: 20060101
  6. LORAZEPAM [Concomitant]
  7. VALPROATE SODIUM [Concomitant]
  8. PIPAMPERONE [Concomitant]
     Indication: SEDATION
     Route: 048
     Dates: start: 20100907
  9. AGOMELATINE [Concomitant]
     Indication: DEPRESSION
     Route: 048
     Dates: start: 20110824

REACTIONS (1)
  - VISUAL ACUITY REDUCED [None]
